FAERS Safety Report 16310156 (Version 2)
Quarter: 2019Q2

REPORT INFORMATION
  Report Type: Spontaneous
  Country: DE (occurrence: DE)
  Receive Date: 20190514
  Receipt Date: 20190619
  Transmission Date: 20190711
  Serious: Yes (Other)
  Sender: FDA-Public Use
  Company Number: DE-BAYER-2019-092068

PATIENT
  Age: 24 Year
  Sex: Female
  Weight: 47 kg

DRUGS (1)
  1. JAYDESS [Suspect]
     Active Substance: LEVONORGESTREL
     Dosage: UNK
     Route: 015
     Dates: end: 201903

REACTIONS (9)
  - Depressed mood [Recovered/Resolved]
  - Palpitations [Recovered/Resolved]
  - Hirsutism [Recovering/Resolving]
  - Tremor [Recovered/Resolved]
  - Alopecia [Recovering/Resolving]
  - Depression suicidal [Recovered/Resolved]
  - Suicidal ideation [Recovered/Resolved]
  - Suicidal ideation [Recovered/Resolved]
  - Acute stress disorder [Recovered/Resolved]

NARRATIVE: CASE EVENT DATE: 201803
